FAERS Safety Report 24922742 (Version 1)
Quarter: 2025Q1

REPORT INFORMATION
  Report Type: Spontaneous
  Country: CH (occurrence: CH)
  Receive Date: 20250204
  Receipt Date: 20250204
  Transmission Date: 20250409
  Serious: Yes (Hospitalization)
  Sender: UCB
  Company Number: CH-UCBSA-2025005080

PATIENT

DRUGS (8)
  1. BRIVIACT [Suspect]
     Active Substance: BRIVARACETAM
     Indication: Epilepsy
  2. BRIVIACT [Suspect]
     Active Substance: BRIVARACETAM
  3. FYCOMPA [Suspect]
     Active Substance: PERAMPANEL
     Indication: Epilepsy
  4. VIMPAT [Concomitant]
     Active Substance: LACOSAMIDE
     Indication: Partial seizures
  5. ZONEGRAN [Concomitant]
     Active Substance: ZONISAMIDE
     Indication: Product used for unknown indication
  6. LAMICTAL [Concomitant]
     Active Substance: LAMOTRIGINE
     Indication: Product used for unknown indication
  7. RIVOTRIL [Concomitant]
     Active Substance: CLONAZEPAM
     Indication: Partial seizures
  8. ESLICARBAZEPINE [Concomitant]
     Active Substance: ESLICARBAZEPINE
     Indication: Product used for unknown indication

REACTIONS (2)
  - Generalised tonic-clonic seizure [Unknown]
  - Off label use [Unknown]
